FAERS Safety Report 21312195 (Version 1)
Quarter: 2022Q3

REPORT INFORMATION
  Report Type: Spontaneous
  Country: JP (occurrence: JP)
  Receive Date: 20220909
  Receipt Date: 20220909
  Transmission Date: 20221026
  Serious: Yes (Other)
  Sender: FDA-Public Use
  Company Number: JP-GILEAD-2022-0596413

PATIENT
  Age: 72 Year
  Sex: Male

DRUGS (1)
  1. VEKLURY [Suspect]
     Active Substance: REMDESIVIR
     Indication: COVID-19
     Dosage: UNK
     Route: 041
     Dates: start: 20220819, end: 20220821

REACTIONS (2)
  - Acute generalised exanthematous pustulosis [Unknown]
  - Drug eruption [Unknown]

NARRATIVE: CASE EVENT DATE: 20220821
